FAERS Safety Report 7570885-9 (Version None)
Quarter: 2011Q2

REPORT INFORMATION
  Report Type: 
  Country: None (occurrence: None)
  Receive Date: 20110622
  Receipt Date: 20110622
  Transmission Date: 20111010
  Serious: Yes (Other)
  Sender: FDA-Public Use
  Company Number: None

PATIENT
  Sex: Female
  Weight: 65.7716 kg

DRUGS (2)
  1. LATISSE [Suspect]
     Indication: PRURITUS
     Dosage: BRUSHFUL 1XDAY EYELASH
     Dates: start: 20110606
  2. LATISSE [Suspect]
     Indication: PRURITUS
     Dosage: BRUSHFUL 1XDAY EYELASH
     Dates: start: 20110530

REACTIONS (1)
  - PAIN [None]
